FAERS Safety Report 24257976 (Version 1)
Quarter: 2024Q3

REPORT INFORMATION
  Report Type: Spontaneous
  Country: CN (occurrence: CN)
  Receive Date: 20240828
  Receipt Date: 20240828
  Transmission Date: 20241017
  Serious: Yes (Other)
  Sender: BAYER
  Company Number: CN-BAYER-2024A122328

PATIENT
  Age: 52 Year
  Sex: Female

DRUGS (2)
  1. ULTRAVIST [Suspect]
     Active Substance: IOPROMIDE
     Indication: Computerised tomogram heart
     Dosage: 60 ML, ONCE
     Dates: start: 20240319, end: 20240319
  2. ULTRAVIST [Suspect]
     Active Substance: IOPROMIDE
     Indication: Chest pain

REACTIONS (5)
  - Loss of consciousness [Recovered/Resolved]
  - Blood pressure immeasurable [Recovered/Resolved]
  - Urinary incontinence [Recovered/Resolved]
  - Rash [Recovered/Resolved]
  - Hypoaesthesia oral [Recovered/Resolved]

NARRATIVE: CASE EVENT DATE: 20240319
